FAERS Safety Report 4479982-8 (Version None)
Quarter: 2004Q3

REPORT INFORMATION
  Report Type: 
  Country: None (occurrence: None)
  Receive Date: 20040928
  Receipt Date: 20040915
  Transmission Date: 20050211
  Serious: Yes (Hospitalization)
  Sender: FDA-Public Use
  Company Number: THYM-10286

PATIENT
  Age: 55 Year
  Sex: Female
  Weight: 60 kg

DRUGS (4)
  1. THYMOGLOBULIN [Suspect]
     Indication: RENAL TRANSPLANT
     Dosage: 75 MG IV
     Route: 042
     Dates: start: 20040907, end: 20040907
  2. THYMOGLOBULIN [Suspect]
     Indication: RENAL TRANSPLANT
     Dosage: 50 MG IV
     Route: 042
     Dates: start: 20040909, end: 20040909
  3. THYMOGLOBULIN [Suspect]
     Indication: RENAL TRANSPLANT
     Dosage: 75 MG IV
     Route: 042
     Dates: start: 20040913, end: 20040913
  4. SOLU-MEDROL [Concomitant]

REACTIONS (2)
  - HYPOTENSION [None]
  - MEDICATION ERROR [None]
